FAERS Safety Report 10455223 (Version 1)
Quarter: 2014Q3

REPORT INFORMATION
  Report Type: Spontaneous
  Country: CA (occurrence: CA)
  Receive Date: 20140916
  Receipt Date: 20140916
  Transmission Date: 20150326
  Serious: Yes (Hospitalization)
  Sender: FDA-Public Use
  Company Number: CA-ROCHE-1462257

PATIENT
  Age: 58 Year
  Sex: Female

DRUGS (5)
  1. MYCOPHENOLATE MOFETIL. [Suspect]
     Active Substance: MYCOPHENOLATE MOFETIL
     Indication: PRODUCT USED FOR UNKNOWN INDICATION
     Route: 065
  2. HYDROXYCHLOROQUINE [Concomitant]
     Active Substance: HYDROXYCHLOROQUINE
  3. PREDNISONE. [Concomitant]
     Active Substance: PREDNISONE
  4. BENLYSTA [Suspect]
     Active Substance: BELIMUMAB
     Indication: PRODUCT USED FOR UNKNOWN INDICATION
     Route: 042
  5. BENLYSTA [Suspect]
     Active Substance: BELIMUMAB
     Route: 042

REACTIONS (9)
  - Aphasia [Recovered/Resolved with Sequelae]
  - Cognitive disorder [Recovered/Resolved with Sequelae]
  - JC virus infection [Recovered/Resolved with Sequelae]
  - Asthenia [Recovered/Resolved with Sequelae]
  - Leukopenia [Recovered/Resolved with Sequelae]
  - Progressive multifocal leukoencephalopathy [Recovered/Resolved with Sequelae]
  - Infection [Recovered/Resolved with Sequelae]
  - Lymphopenia [Recovered/Resolved with Sequelae]
  - White matter lesion [Recovered/Resolved with Sequelae]
